FAERS Safety Report 8439244-0 (Version None)
Quarter: 2012Q2

REPORT INFORMATION
  Report Type: 
  Country: None (occurrence: None)
  Receive Date: 20120615
  Receipt Date: 20120610
  Transmission Date: 20120825
  Serious: Yes (Other)
  Sender: FDA-Public Use
  Company Number: PHEH2012US009985

PATIENT
  Sex: Female

DRUGS (2)
  1. ASPIRIN [Concomitant]
     Indication: ANALGESIC THERAPY
     Dosage: 325 MG, PRN
     Route: 048
  2. ESTRADERM [Suspect]
     Indication: MENOPAUSE
     Dosage: 0.05 MG, QW2
     Route: 062
     Dates: end: 20120417

REACTIONS (1)
  - RENAL CANCER [None]
